FAERS Safety Report 9127245 (Version 1)
Quarter: 2013Q1

REPORT INFORMATION
  Report Type: Spontaneous
  Country: US (occurrence: US)
  Receive Date: 20130228
  Receipt Date: 20130228
  Transmission Date: 20140127
  Serious: No
  Sender: FDA-Public Use
  Company Number: US-MYLANLABS-2012S1019264

PATIENT
  Age: 80 Year
  Sex: Female
  Weight: 61.69 kg

DRUGS (9)
  1. METFORMIN HYDROCHLORIDE [Suspect]
     Indication: DIABETES MELLITUS
     Route: 048
     Dates: start: 20120910
  2. VICODIN [Concomitant]
     Indication: PAIN
  3. LEVOTHYROXINE [Concomitant]
     Indication: HYPOTHYROIDISM
     Route: 048
     Dates: start: 1988
  4. MELOXICAM [Concomitant]
     Indication: PAIN
     Route: 048
     Dates: start: 2011
  5. BLOOD PRESSURE PILL [Concomitant]
     Indication: BLOOD PRESSURE INCREASED
     Route: 048
  6. ATENOLOL [Concomitant]
     Indication: BLOOD PRESSURE INCREASED
  7. ASA [Concomitant]
  8. VITAMIN D [Concomitant]
     Dates: start: 20120910
  9. FENOFIBRATE [Concomitant]
     Route: 048
     Dates: start: 20120910

REACTIONS (4)
  - Blood pressure fluctuation [Not Recovered/Not Resolved]
  - Heart rate decreased [Not Recovered/Not Resolved]
  - Abdominal pain upper [Not Recovered/Not Resolved]
  - Dizziness [Not Recovered/Not Resolved]
